FAERS Safety Report 13820871 (Version 1)
Quarter: 2017Q3

REPORT INFORMATION
  Report Type: Spontaneous
  Country: FR (occurrence: FR)
  Receive Date: 20170801
  Receipt Date: 20170801
  Transmission Date: 20171127
  Serious: Yes (Hospitalization)
  Sender: FDA-Public Use
  Company Number: FR-BAYER-2017-142444

PATIENT
  Age: 39 Year
  Sex: Female

DRUGS (1)
  1. MIRENA [Suspect]
     Active Substance: LEVONORGESTREL
     Dosage: 20 MCG/24HR, CONT
     Route: 015
     Dates: start: 1998, end: 20131009

REACTIONS (6)
  - Diffuse alopecia [Recovered/Resolved]
  - Loss of libido [Recovered/Resolved]
  - Weight increased [Recovered/Resolved]
  - Breast cancer [Recovered/Resolved with Sequelae]
  - Hyperhidrosis [Recovered/Resolved]
  - Irritability [Recovered/Resolved]

NARRATIVE: CASE EVENT DATE: 20131009
